FAERS Safety Report 23258710 (Version 1)
Quarter: 2023Q4

REPORT INFORMATION
  Report Type: Spontaneous
  Country: US (occurrence: None)
  Receive Date: 20231202
  Receipt Date: 20231202
  Transmission Date: 20240110
  Serious: Yes (unspecified)
  Sender: FDA-Public Use
  Company Number: None

PATIENT
  Age: 30 Year
  Sex: Female
  Weight: 49.05 kg

DRUGS (1)
  1. RITUXAN [Suspect]
     Active Substance: RITUXIMAB
     Indication: Polymyositis
     Dosage: OTHER FREQUENCY : DAY 0, WEEK 2 Q6MO;?1000 MG DAY 0, WEEK 2 Q6MO INTRAVENOUS DRIP
     Route: 041

REACTIONS (4)
  - Cough [None]
  - Infusion related reaction [None]
  - Asthma [None]
  - Therapy cessation [None]

NARRATIVE: CASE EVENT DATE: 20231202
